FAERS Safety Report 6980199-3 (Version None)
Quarter: 2010Q3

REPORT INFORMATION
  Report Type: 
  Country: None (occurrence: None)
  Receive Date: 20100914
  Receipt Date: 20100831
  Transmission Date: 20110219
  Serious: Yes (Other)
  Sender: FDA-Public Use
  Company Number: GB-RANBAXY-2010RR-38057

PATIENT
  Age: 26 Year
  Sex: Female
  Weight: 66 kg

DRUGS (1)
  1. AMPICILLIN SODIUM/SULBACTAM SODIUM [Suspect]
     Indication: URINARY TRACT INFECTION
     Dosage: 625 MG, UNK
     Route: 048
     Dates: start: 20100807, end: 20100812

REACTIONS (3)
  - CELLULITIS [None]
  - HYPERSENSITIVITY [None]
  - RASH MACULAR [None]
